FAERS Safety Report 6429137-2 (Version None)
Quarter: 2009Q4

REPORT INFORMATION
  Report Type: 
  Country: None (occurrence: None)
  Receive Date: 20091105
  Receipt Date: 20091026
  Transmission Date: 20100525
  Serious: Yes (Hospitalization)
  Sender: FDA-Public Use
  Company Number: US-ELI_LILLY_AND_COMPANY-US200911000226

PATIENT
  Sex: Female

DRUGS (3)
  1. FORTEO [Suspect]
     Dosage: 20 UG, DAILY (1/D)
     Dates: start: 20080101, end: 20090101
  2. CALCIUM                                 /N/A/ [Concomitant]
  3. ANTIHYPERTENSIVES [Concomitant]

REACTIONS (14)
  - ANXIETY [None]
  - BACK PAIN [None]
  - COMPRESSION FRACTURE [None]
  - FACIAL BONES FRACTURE [None]
  - FALL [None]
  - IMPAIRED HEALING [None]
  - KIDNEY INFECTION [None]
  - MUSCLE SPASMS [None]
  - NAUSEA [None]
  - NEPHROLITHIASIS [None]
  - PAIN IN EXTREMITY [None]
  - UPPER LIMB FRACTURE [None]
  - URINARY TRACT INFECTION [None]
  - WRIST FRACTURE [None]
